FAERS Safety Report 14226205 (Version 1)
Quarter: 2017Q4

REPORT INFORMATION
  Report Type: Report from Study
  Country: IL (occurrence: IL)
  Receive Date: 20171127
  Receipt Date: 20171127
  Transmission Date: 20180321
  Serious: Yes (Hospitalization, Other)
  Sender: FDA-Public Use
  Company Number: IL-PFIZER INC-2017456415

PATIENT
  Age: 68 Year
  Sex: Male

DRUGS (2)
  1. PALBOCICLIB [Suspect]
     Active Substance: PALBOCICLIB
     Indication: LIPOSARCOMA
     Dosage: 125 MG,  DAILY
     Route: 048
     Dates: start: 20151111
  2. PALBOCICLIB [Suspect]
     Active Substance: PALBOCICLIB
     Dosage: 125 MG,  DAILY
     Route: 048

REACTIONS (4)
  - Gastric haemorrhage [Recovered/Resolved]
  - Melaena [Recovered/Resolved]
  - Gastric ulcer [Unknown]
  - Haemoglobin decreased [Recovering/Resolving]

NARRATIVE: CASE EVENT DATE: 201708
